FAERS Safety Report 15030127 (Version 1)
Quarter: 2018Q2

REPORT INFORMATION
  Report Type: Spontaneous
  Country: US (occurrence: US)
  Receive Date: 20180619
  Receipt Date: 20180619
  Transmission Date: 20180711
  Serious: No
  Sender: FDA-Public Use
  Company Number: US-BAYER-2018-112897

PATIENT
  Age: 57 Year
  Sex: Female

DRUGS (2)
  1. HUMIRA [Concomitant]
     Active Substance: ADALIMUMAB
     Indication: ARTHRITIS
     Dosage: 4 MG, UNK
     Route: 058
     Dates: start: 20180406, end: 2018
  2. CLARITIN [Suspect]
     Active Substance: LORATADINE

REACTIONS (2)
  - Staphylococcus test positive [Unknown]
  - Drug ineffective [Unknown]
